FAERS Safety Report 17543584 (Version 1)
Quarter: 2020Q1

REPORT INFORMATION
  Report Type: Spontaneous
  Country: US (occurrence: US)
  Receive Date: 20200316
  Receipt Date: 20200316
  Transmission Date: 20200409
  Serious: Yes (Hospitalization)
  Sender: FDA-Public Use
  Company Number: US-ROCHE-2567631

PATIENT
  Sex: Male
  Weight: 49.1 kg

DRUGS (11)
  1. DULERA [Concomitant]
     Active Substance: FORMOTEROL FUMARATE DIHYDRATE\MOMETASONE FUROATE
     Indication: ASTHMA
     Dosage: 2 PUFFS TWICE A DAY ;ONGOING: YES
     Route: 055
  2. ALBUTEROL [SALBUTAMOL] [Concomitant]
     Active Substance: ALBUTEROL
     Indication: ASTHMA
     Dosage: AS NEEDED ;ONGOING: YES
     Route: 055
  3. ZADITOR [KETOTIFEN] [Concomitant]
     Indication: HYPERSENSITIVITY
     Dosage: AS NEEDED ;ONGOING: YES
     Route: 031
  4. XOLAIR [Suspect]
     Active Substance: OMALIZUMAB
     Indication: ASTHMA
     Route: 058
  5. FLOVENT [Concomitant]
     Active Substance: FLUTICASONE PROPIONATE
     Dosage: AS NEEDED WHEN PATIENT IS IN YELLOW ZONE ;ONGOING: YES
     Route: 055
  6. FLOVENT [Concomitant]
     Active Substance: FLUTICASONE PROPIONATE
     Indication: ASTHMA
     Dosage: 2 PUFFS TWICE A DAY ;ONGOING: YES
     Route: 055
  7. ZYRTEC [Concomitant]
     Active Substance: CETIRIZINE HYDROCHLORIDE
     Indication: HYPERSENSITIVITY
     Dosage: YES
     Route: 048
  8. IPRATROPIUM [Concomitant]
     Active Substance: IPRATROPIUM
     Indication: DYSPNOEA
     Dosage: 1 VIAL MIXED WITH ALBUTEROL EVERY 6 HR AS NEEDED ;ONGOING: YES
     Route: 065
  9. SINGULAIR [Concomitant]
     Active Substance: MONTELUKAST SODIUM
     Indication: ASTHMA
     Dosage: YES
     Route: 048
  10. FLONASE [Concomitant]
     Active Substance: FLUTICASONE PROPIONATE
     Indication: HYPERSENSITIVITY
     Dosage: YES
     Route: 045
  11. TRIAMCINOLONE [Concomitant]
     Active Substance: TRIAMCINOLONE
     Indication: ECZEMA
     Dosage: AS NEEDED ;ONGOING: YES
     Route: 061

REACTIONS (1)
  - Anaphylactic reaction [Recovered/Resolved]
